FAERS Safety Report 13139484 (Version 5)
Quarter: 2017Q2

REPORT INFORMATION
  Report Type: Report from Study
  Country: US (occurrence: US)
  Receive Date: 20170123
  Receipt Date: 20170614
  Transmission Date: 20170830
  Serious: Yes (Other)
  Sender: FDA-Public Use
  Company Number: US-BAYER-2017-009112

PATIENT
  Age: 14 Year
  Sex: Male
  Weight: 80.73 kg

DRUGS (5)
  1. KOGENATE FS [Suspect]
     Active Substance: ANTIHEMOPHILIC FACTOR, HUMAN RECOMBINANT
     Indication: FACTOR VIII DEFICIENCY
     Dosage: 2338 U, ONCE, PREVENTATIVE MEASURE
     Route: 042
     Dates: start: 20170411
  2. KOGENATE FS [Suspect]
     Active Substance: ANTIHEMOPHILIC FACTOR, HUMAN RECOMBINANT
     Indication: FACTOR VIII DEFICIENCY
     Dosage: PREVENTIVE DOSE
     Route: 042
     Dates: start: 20170205
  3. KOGENATE FS [Suspect]
     Active Substance: ANTIHEMOPHILIC FACTOR, HUMAN RECOMBINANT
     Indication: FACTOR VIII DEFICIENCY
     Dosage: 2338 U, ONCE
     Route: 042
     Dates: start: 20170523
  4. KOGENATE FS [Suspect]
     Active Substance: ANTIHEMOPHILIC FACTOR, HUMAN RECOMBINANT
     Indication: FACTOR VIII DEFICIENCY
     Dosage: 2338 U +/-10% THREE TIMES A WEEK AND AS NEEDED
     Route: 042
     Dates: start: 20161112
  5. KOGENATE FS [Suspect]
     Active Substance: ANTIHEMOPHILIC FACTOR, HUMAN RECOMBINANT
     Indication: FACTOR VIII DEFICIENCY
     Dosage: 2338 U, ONCE
     Route: 042

REACTIONS (8)
  - Blood pressure abnormal [Recovered/Resolved]
  - Gingival swelling [Recovered/Resolved]
  - Loss of consciousness [Recovered/Resolved]
  - Mouth haemorrhage [Recovered/Resolved]
  - Haemorrhage [Recovered/Resolved]
  - Mouth injury [Recovered/Resolved]
  - Face injury [Recovered/Resolved]
  - Road traffic accident [Recovered/Resolved]

NARRATIVE: CASE EVENT DATE: 20161112
